FAERS Safety Report 26146950 (Version 1)
Quarter: 2025Q4

REPORT INFORMATION
  Report Type: Spontaneous
  Country: CN (occurrence: CN)
  Receive Date: 20251211
  Receipt Date: 20251211
  Transmission Date: 20260117
  Serious: Yes (Other)
  Sender: BRACCO
  Company Number: CN-BRACCO-2025CN08441

PATIENT
  Age: 56 Year
  Sex: Male
  Weight: 75 kg

DRUGS (3)
  1. SULPHUR HEXAFLUORIDE [Suspect]
     Active Substance: SULFUR HEXAFLUORIDE
     Indication: Imaging procedure
     Dosage: 20 MG, SINGLE
     Route: 040
     Dates: start: 20251125, end: 20251125
  2. SULPHUR HEXAFLUORIDE [Suspect]
     Active Substance: SULFUR HEXAFLUORIDE
  3. SULPHUR HEXAFLUORIDE [Suspect]
     Active Substance: SULFUR HEXAFLUORIDE

REACTIONS (5)
  - Blood pressure increased [Recovering/Resolving]
  - Headache [Recovering/Resolving]
  - Flushing [Recovering/Resolving]
  - Hyperhidrosis [Recovering/Resolving]
  - Tachycardia [Recovering/Resolving]

NARRATIVE: CASE EVENT DATE: 20251125
